FAERS Safety Report 10550137 (Version 2)
Quarter: 2015Q2

REPORT INFORMATION
  Report Type: Spontaneous
  Country: IT (occurrence: IT)
  Receive Date: 20141028
  Receipt Date: 20150501
  Transmission Date: 20150821
  Serious: Yes (Hospitalization)
  Sender: FDA-Public Use
  Company Number: IT-BAUSCH-BL-2014-007322

PATIENT
  Age: 46 Year
  Sex: Female

DRUGS (4)
  1. ZOLPIDEM TARTRATE. [Suspect]
     Active Substance: ZOLPIDEM TARTRATE
     Indication: INTENTIONAL SELF-INJURY
     Route: 048
     Dates: start: 20140914, end: 20140914
  2. VALDORM [Suspect]
     Active Substance: VALERIAN
     Indication: INTENTIONAL SELF-INJURY
     Route: 048
     Dates: start: 20140914, end: 20140914
  3. DIAZEPAM. [Suspect]
     Active Substance: DIAZEPAM
     Indication: INTENTIONAL SELF-INJURY
     Route: 048
     Dates: start: 20140914, end: 20140914
  4. QUETIAPINE [Suspect]
     Active Substance: QUETIAPINE
     Indication: INTENTIONAL SELF-INJURY
     Route: 048
     Dates: start: 20140914, end: 20140914

REACTIONS (2)
  - Sopor [Recovered/Resolved]
  - Drug abuse [Recovered/Resolved]

NARRATIVE: CASE EVENT DATE: 20140914
